FAERS Safety Report 7689191-7 (Version None)
Quarter: 2011Q3

REPORT INFORMATION
  Report Type: 
  Country: None (occurrence: None)
  Receive Date: 20110817
  Receipt Date: 20110809
  Transmission Date: 20111222
  Serious: Yes (Hospitalization)
  Sender: FDA-Public Use
  Company Number: JP-BAYER-2011-057400

PATIENT
  Age: 65 Year
  Sex: Female
  Weight: 46 kg

DRUGS (5)
  1. URSO 250 [Concomitant]
     Indication: PROPHYLAXIS
     Dosage: DAILY DOSE 600 MG
     Route: 048
     Dates: start: 20041026
  2. NEXAVAR [Suspect]
     Indication: HEPATIC NEOPLASM MALIGNANT
     Dosage: 400 MG, BID
     Route: 048
     Dates: start: 20110621, end: 20110628
  3. GLYCYRON [GLYCYRRHIZIC ACID] [Concomitant]
     Indication: PROPHYLAXIS
     Dosage: DAILY DOSE 150 MG
     Route: 048
     Dates: start: 20041026, end: 20110630
  4. FAMOTIDINE [Concomitant]
     Indication: GASTRITIS PROPHYLAXIS
     Dosage: DAILY DOSE 40 MG
     Route: 048
     Dates: start: 20101213
  5. ZOLPIDEM [Concomitant]
     Indication: INSOMNIA
     Dosage: DAILY DOSE 5 MG
     Route: 048
     Dates: start: 20101030

REACTIONS (2)
  - HEPATIC ENCEPHALOPATHY [None]
  - LIVER DISORDER [None]
